FAERS Safety Report 9399165 (Version 1)
Quarter: 2013Q3

REPORT INFORMATION
  Report Type: Report from Study
  Country: IN (occurrence: IN)
  Receive Date: 20130715
  Receipt Date: 20130715
  Transmission Date: 20140515
  Serious: Yes (Hospitalization, Other)
  Sender: FDA-Public Use
  Company Number: IN-BRISTOL-MYERS SQUIBB COMPANY-16331910

PATIENT
  Age: 46 Year
  Sex: Male

DRUGS (10)
  1. SAXAGLIPTIN [Suspect]
     Indication: TYPE 2 DIABETES MELLITUS
     Dates: start: 20110511
  2. PIOGLITAZONE HCL [Suspect]
     Indication: TYPE 2 DIABETES MELLITUS
     Dates: start: 20110511
  3. GLIMEPIRIDE [Suspect]
     Indication: TYPE 2 DIABETES MELLITUS
     Dates: start: 20110511
  4. HUMINSULIN BASAL [Suspect]
     Indication: TYPE 2 DIABETES MELLITUS
     Dosage: 1DF: 20IU?HOMINSULIN 30/70
     Dates: start: 20110511
  5. SORBITRATE [Concomitant]
     Dosage: TAB
     Dates: start: 20110801
  6. ZYTANIX [Concomitant]
     Dosage: TAB
     Dates: start: 20120102
  7. DEXTROSE [Concomitant]
     Dosage: INJ DEXTROSE 25%
     Dates: start: 20120104
  8. ASPIRIN [Concomitant]
  9. LASIX [Concomitant]
     Dosage: FORM: INJ
     Dates: start: 20120104, end: 20120106
  10. NITROGLYCERIN [Concomitant]
     Dosage: FORM: INJ
     Dates: start: 20120104, end: 20120105

REACTIONS (2)
  - Hypoglycaemia [Recovered/Resolved]
  - Renal failure chronic [Recovered/Resolved]
